FAERS Safety Report 16661188 (Version 1)
Quarter: 2019Q3

REPORT INFORMATION
  Report Type: Spontaneous
  Country: US (occurrence: US)
  Receive Date: 20190802
  Receipt Date: 20190802
  Transmission Date: 20191004
  Serious: Yes (Death, Other)
  Sender: FDA-Public Use
  Company Number: US-CLOVIS ONCOLOGY-CLO-2019-001494

PATIENT
  Sex: Female

DRUGS (1)
  1. RUBRACA [Suspect]
     Active Substance: RUCAPARIB CAMSYLATE
     Indication: PRODUCT USED FOR UNKNOWN INDICATION
     Dosage: UNK

REACTIONS (3)
  - Traumatic liver injury [Not Recovered/Not Resolved]
  - Post procedural haemorrhage [Fatal]
  - Hernia [Not Recovered/Not Resolved]

NARRATIVE: CASE EVENT DATE: 20190708
